FAERS Safety Report 6763315-8 (Version None)
Quarter: 2010Q2

REPORT INFORMATION
  Report Type: 
  Country: None (occurrence: None)
  Receive Date: 20100608
  Receipt Date: 20100608
  Transmission Date: 20101027
  Serious: Yes (Hospitalization)
  Sender: FDA-Public Use
  Company Number: None

PATIENT
  Sex: Female
  Weight: 80 kg

DRUGS (8)
  1. CARBOPLATIN [Suspect]
     Dosage: 458 MG
     Dates: end: 20100512
  2. TAXOTERE [Suspect]
     Dosage: 143 MG
     Dates: end: 20100512
  3. TAXOL [Suspect]
     Dosage: 115 MG
     Dates: end: 20100519
  4. ATIVAN [Concomitant]
  5. FOLIC ACID [Concomitant]
  6. GRANISETRON [Concomitant]
  7. LOMOTIL [Concomitant]
  8. PREVACID [Concomitant]

REACTIONS (3)
  - PULMONARY EMBOLISM [None]
  - PYREXIA [None]
  - SINUS TACHYCARDIA [None]
